FAERS Safety Report 6828399-7 (Version None)
Quarter: 2010Q3

REPORT INFORMATION
  Report Type: 
  Country: None (occurrence: None)
  Receive Date: 20100709
  Receipt Date: 20070207
  Transmission Date: 20110219
  Serious: No
  Sender: FDA-Public Use
  Company Number: US-PFIZER INC-2007010807

PATIENT
  Sex: Female
  Weight: 70.31 kg

DRUGS (6)
  1. CHANTIX [Suspect]
     Dates: start: 20070205, end: 20070206
  2. YASMIN [Concomitant]
     Indication: CONTRACEPTION
  3. FOLIC ACID [Concomitant]
  4. BIOTIN [Concomitant]
  5. ALEVE (CAPLET) [Concomitant]
  6. MULTI-VITAMINS [Concomitant]

REACTIONS (1)
  - METRORRHAGIA [None]
